FAERS Safety Report 7412150-6 (Version None)
Quarter: 2011Q2

REPORT INFORMATION
  Report Type: 
  Country: None (occurrence: None)
  Receive Date: 20110413
  Receipt Date: 20110411
  Transmission Date: 20111010
  Serious: Yes (Death, Hospitalization)
  Sender: FDA-Public Use
  Company Number: BE-PFIZER INC-2009198317

PATIENT
  Age: 84 Year
  Sex: Male

DRUGS (11)
  1. PANTOZOL [Concomitant]
     Dosage: UNK
     Route: 048
     Dates: start: 20090218
  2. SANDOSTATIN [Concomitant]
     Dosage: UNK
     Route: 030
     Dates: start: 20050301
  3. MOVIPREP [Concomitant]
     Dosage: UNK
     Dates: start: 20090228
  4. PILOCARPINE HYDROCHLORIDE [Concomitant]
     Dosage: UNK
     Route: 047
     Dates: start: 20090301
  5. REPAGLINIDE [Concomitant]
     Dosage: UNK
     Route: 048
     Dates: start: 20070926
  6. LASIX [Concomitant]
     Dosage: UNK
     Dates: start: 20090301
  7. SUNITINIB MALATE [Suspect]
     Indication: PANCREATIC NEUROENDOCRINE TUMOUR
     Dosage: 12.5 MG, 3X/DAY
     Route: 048
     Dates: start: 20090311, end: 20090406
  8. LITICAN [Concomitant]
     Dosage: UNK
     Route: 048
     Dates: start: 20090309
  9. ARTEOPTIC [Concomitant]
     Dosage: UNK
     Route: 047
     Dates: start: 20090301
  10. DOMPERIDONE [Concomitant]
     Dosage: UNK
     Dates: start: 20090228, end: 20090406
  11. DURAGESIC-100 [Concomitant]
     Dosage: UNK
     Route: 062
     Dates: start: 20081113

REACTIONS (3)
  - GENERAL PHYSICAL HEALTH DETERIORATION [None]
  - SUDDEN DEATH [None]
  - METABOLIC ENCEPHALOPATHY [None]
